FAERS Safety Report 6525453-4 (Version None)
Quarter: 2009Q4

REPORT INFORMATION
  Report Type: 
  Country: None (occurrence: None)
  Receive Date: 20091222
  Receipt Date: 20091218
  Transmission Date: 20100525
  Serious: Yes (Hospitalization)
  Sender: FDA-Public Use
  Company Number: 2008SP003768

PATIENT
  Age: 69 Year
  Sex: Male

DRUGS (2)
  1. DIPROSPAN (BETAMETHASONE SODIUM PHOSPHATE/DIPROPIONATE) (BETAMETHASONE [Suspect]
     Indication: EXOSTOSIS
     Dosage: 1 ML;
     Dates: start: 20070625
  2. LIDOCAINE HCL [Suspect]
     Indication: LOCAL ANAESTHESIA
     Dosage: 2 ML;
     Dates: start: 20070625

REACTIONS (5)
  - CELLULITIS [None]
  - EXOSTOSIS [None]
  - FISTULA DISCHARGE [None]
  - INJECTION SITE REACTION [None]
  - OSTEOMYELITIS [None]
